FAERS Safety Report 18641839 (Version 1)
Quarter: 2020Q4

REPORT INFORMATION
  Report Type: Spontaneous
  Country: GB (occurrence: GB)
  Receive Date: 20201221
  Receipt Date: 20201221
  Transmission Date: 20210114
  Serious: Yes (Life-Threatening, Hospitalization, Other)
  Sender: FDA-Public Use
  Company Number: GB-ACCORD-211544

PATIENT
  Age: 23 Year
  Sex: Female
  Weight: 55.3 kg

DRUGS (7)
  1. GEDAREL [Concomitant]
  2. LEVOTHYROXINE. [Concomitant]
     Active Substance: LEVOTHYROXINE
  3. AMITRIPTYLINE [Concomitant]
     Active Substance: AMITRIPTYLINE
  4. MIRTAZAPINE. [Concomitant]
     Active Substance: MIRTAZAPINE
  5. SERTRALINE [Suspect]
     Active Substance: SERTRALINE HYDROCHLORIDE
     Indication: ANXIETY
     Route: 048
     Dates: start: 20201118, end: 20201120
  6. IRON [Concomitant]
     Active Substance: IRON
  7. OLANZAPINE. [Concomitant]
     Active Substance: OLANZAPINE

REACTIONS (4)
  - Contusion [Unknown]
  - Thrombocytopenia [Not Recovered/Not Resolved]
  - Gingival bleeding [Unknown]
  - Syncope [Unknown]

NARRATIVE: CASE EVENT DATE: 20201119
